FAERS Safety Report 9487173 (Version 1)
Quarter: 2013Q3

REPORT INFORMATION
  Report Type: Report from Study
  Country: US (occurrence: US)
  Receive Date: 20130829
  Receipt Date: 20130829
  Transmission Date: 20140515
  Serious: Yes (Other)
  Sender: FDA-Public Use
  Company Number: US-ABBOTT-13P-163-1138410-00

PATIENT
  Age: 67 Year
  Sex: Female

DRUGS (11)
  1. HUMIRA [Suspect]
     Indication: RHEUMATOID ARTHRITIS
     Dates: start: 201302, end: 201306
  2. HUMIRA [Suspect]
     Dates: start: 201306
  3. FOLIC ACID [Concomitant]
     Indication: VITAMIN SUPPLEMENTATION
  4. METHOTREXATE [Concomitant]
     Indication: RHEUMATOID ARTHRITIS
     Dosage: 3 IN THE A.M. AND 3 IN THE P.M.
  5. LANOXIN [Concomitant]
     Indication: CARDIAC DISORDER
     Dosage: 0.28MG DAILY
  6. TOPROL [Concomitant]
     Indication: HYPERTENSION
  7. CARDIZEM [Concomitant]
     Indication: HEART RATE IRREGULAR
     Dosage: 180MG DAILY
  8. ZOLOFT [Concomitant]
     Indication: ANXIETY
     Dosage: 100MG DAILY
  9. VYTORIN [Concomitant]
     Indication: PRODUCT USED FOR UNKNOWN INDICATION
     Dosage: 10/40MG DAILY
  10. COUMADIN [Concomitant]
     Indication: ANTICOAGULANT THERAPY
     Dosage: ON SUNDAY AND THURSDAY
  11. COUMADIN [Concomitant]
     Indication: HEART VALVE REPLACEMENT
     Dosage: ON MONDAY, TUESDAY,WEDNESDAY, FRIDAY AND SATURDAY

REACTIONS (7)
  - Cardiac stress test abnormal [Recovered/Resolved]
  - Rheumatoid arthritis [Unknown]
  - Nasal ulcer [Unknown]
  - Myalgia [Unknown]
  - Herpes zoster [Unknown]
  - Rash papular [Unknown]
  - Rash pruritic [Unknown]
